FAERS Safety Report 8621432 (Version 3)
Quarter: 2016Q2

REPORT INFORMATION
  Report Type: Report from Study
  Country: CA (occurrence: CA)
  Receive Date: 20120619
  Receipt Date: 20160608
  Transmission Date: 20160815
  Serious: Yes (Hospitalization, Other)
  Sender: FDA-Public Use
  Company Number: PHHY2012CA051859

PATIENT
  Age: 31 Year
  Sex: Female

DRUGS (2)
  1. DILAUDID [Concomitant]
     Active Substance: HYDROMORPHONE HYDROCHLORIDE
     Indication: PRODUCT USED FOR UNKNOWN INDICATION
     Route: 065
  2. EXJADE [Suspect]
     Active Substance: DEFERASIROX
     Indication: SICKLE CELL ANAEMIA
     Dosage: 1500 MG, QD
     Route: 048
     Dates: start: 20120402

REACTIONS (9)
  - Retinal tear [Unknown]
  - Sickle cell anaemia with crisis [Unknown]
  - Retinal haemorrhage [Unknown]
  - Malaise [Not Recovered/Not Resolved]
  - Sleep disorder [Unknown]
  - Blood potassium decreased [Unknown]
  - Pain [Unknown]
  - Retinal detachment [Unknown]
  - Migraine [Unknown]

NARRATIVE: CASE EVENT DATE: 20140910
